FAERS Safety Report 5328266-4 (Version None)
Quarter: 2007Q2

REPORT INFORMATION
  Report Type: 
  Country: None (occurrence: None)
  Receive Date: 20070515
  Receipt Date: 20070515
  Transmission Date: 20071010
  Serious: Yes (Other)
  Sender: FDA-Public Use
  Company Number: None

PATIENT
  Sex: Female
  Weight: 92.5338 kg

DRUGS (2)
  1. VASOTEC [Suspect]
     Indication: HYPERTENSION
     Dosage: 1 TAB DAILY PO
     Route: 048
     Dates: start: 20070423, end: 20070503
  2. HYDRALAZINE 25MG BID [Suspect]
     Dosage: 1 TAB BID PO
     Route: 048
     Dates: start: 20070503, end: 20070510

REACTIONS (2)
  - NAUSEA [None]
  - VOMITING [None]
